FAERS Safety Report 9879181 (Version 2)
Quarter: 2014Q2

REPORT INFORMATION
  Report Type: Spontaneous
  Country: US (occurrence: US)
  Receive Date: 20140206
  Receipt Date: 20140617
  Transmission Date: 20141212
  Serious: No
  Sender: FDA-Public Use
  Company Number: US-TEVA-461087USA

PATIENT
  Age: 16 Year
  Sex: Male

DRUGS (4)
  1. CLARAVIS [Suspect]
     Indication: ACNE
     Route: 048
     Dates: start: 20131029, end: 20131230
  2. PULMICORT INHALER [Concomitant]
     Route: 055
  3. FLUTICASONE [Concomitant]
     Route: 045
  4. SINGULAIR [Concomitant]

REACTIONS (5)
  - Mood swings [Recovering/Resolving]
  - Sleep disorder [Recovering/Resolving]
  - Irritability [Unknown]
  - Anger [Unknown]
  - Frustration [Unknown]
